FAERS Safety Report 19840664 (Version 1)
Quarter: 2021Q3

REPORT INFORMATION
  Report Type: Report from Study
  Country: US (occurrence: US)
  Receive Date: 20210916
  Receipt Date: 20210916
  Transmission Date: 20211014
  Serious: Yes (Hospitalization)
  Sender: FDA-Public Use
  Company Number: US-PHARMALEX A.R.C.-2118442

PATIENT
  Age: 50 Year
  Sex: Male
  Weight: 96.3 kg

DRUGS (2)
  1. LUMOXITI [Suspect]
     Active Substance: MOXETUMOMAB PASUDOTOX-TDFK
     Indication: HAIRY CELL LEUKAEMIA
     Route: 042
     Dates: start: 20210614, end: 20210810
  2. RITUXIMAB. [Suspect]
     Active Substance: RITUXIMAB
     Route: 042
     Dates: start: 20210611, end: 20210806

REACTIONS (1)
  - Haemolytic uraemic syndrome [Recovered/Resolved]

NARRATIVE: CASE EVENT DATE: 20210813
